FAERS Safety Report 11775003 (Version 1)
Quarter: 2015Q4

REPORT INFORMATION
  Report Type: Spontaneous
  Country: GB (occurrence: GB)
  Receive Date: 20151124
  Receipt Date: 20151124
  Transmission Date: 20160304
  Serious: Yes (Hospitalization)
  Sender: FDA-Public Use
  Company Number: GB-TEVA-609790ACC

PATIENT
  Age: 87 Year
  Sex: Male

DRUGS (6)
  1. BALNEUM PLUS CREAM [Concomitant]
  2. DIGOXIN. [Concomitant]
     Active Substance: DIGOXIN
  3. CLARITHROMYCIN. [Suspect]
     Active Substance: CLARITHROMYCIN
     Indication: RASH GENERALISED
     Dosage: 1000 MILLIGRAM DAILY;
     Route: 048
     Dates: start: 20151002, end: 20151009
  4. WARFARIN [Interacting]
     Active Substance: WARFARIN
     Indication: ATRIAL FIBRILLATION
  5. ALLOPURINOL. [Concomitant]
     Active Substance: ALLOPURINOL
  6. BETAMETHASONE. [Concomitant]
     Active Substance: BETAMETHASONE

REACTIONS (3)
  - Labelled drug-drug interaction medication error [Unknown]
  - Haematuria [Unknown]
  - Haemoglobin decreased [Unknown]

NARRATIVE: CASE EVENT DATE: 20151009
